FAERS Safety Report 24720830 (Version 1)
Quarter: 2024Q4

REPORT INFORMATION
  Report Type: Spontaneous
  Country: RO (occurrence: RO)
  Receive Date: 20241211
  Receipt Date: 20241211
  Transmission Date: 20250115
  Serious: Yes (Other)
  Sender: CELLTRION
  Company Number: RO-PFIZER INC-PV202400156889

PATIENT

DRUGS (4)
  1. INFLIXIMAB [Suspect]
     Active Substance: INFLIXIMAB
     Indication: Colitis ulcerative
     Dosage: 300 MG, WEEKS 0-2-6 THEN EVERY 8
     Dates: end: 201504
  2. INFLIXIMAB [Suspect]
     Active Substance: INFLIXIMAB
     Dosage: 300 MG, EVERY 6 WEEKS
     Dates: start: 201504, end: 201608
  3. INFLIXIMAB [Suspect]
     Active Substance: INFLIXIMAB
     Dosage: 300 MG, EVERY 4 WEEKS
     Dates: start: 201608, end: 201808
  4. INFLIXIMAB [Suspect]
     Active Substance: INFLIXIMAB
     Dosage: 300 MG, EVERY 4 WEEKS
     Dates: start: 201808, end: 202002

REACTIONS (11)
  - Abortion spontaneous [Unknown]
  - Arthralgia [Unknown]
  - Colitis ulcerative [Not Recovered/Not Resolved]
  - Large intestinal stenosis [Unknown]
  - Rectal stenosis [Unknown]
  - Condition aggravated [Not Recovered/Not Resolved]
  - Hypoalbuminaemia [Unknown]
  - Thrombocytosis [Unknown]
  - Erythema nodosum [Unknown]
  - Pseudopolyp [Unknown]
  - Off label use [Unknown]

NARRATIVE: CASE EVENT DATE: 20150401
